FAERS Safety Report 18338844 (Version 1)
Quarter: 2020Q4

REPORT INFORMATION
  Report Type: Spontaneous
  Country: US (occurrence: US)
  Receive Date: 20201002
  Receipt Date: 20201002
  Transmission Date: 20210113
  Serious: No
  Sender: FDA-Public Use
  Company Number: US-SUNOVION-2020SUN002839

PATIENT
  Sex: Female

DRUGS (1)
  1. LATUDA [Suspect]
     Active Substance: LURASIDONE HYDROCHLORIDE
     Dosage: 20 MG CUT IN HALF DAILY
     Route: 048

REACTIONS (4)
  - Chest pain [Unknown]
  - Hypoaesthesia [Unknown]
  - Cardiac disorder [Unknown]
  - Wrong technique in product usage process [Unknown]
